FAERS Safety Report 9338542 (Version 1)
Quarter: 2013Q2

REPORT INFORMATION
  Report Type: Spontaneous
  Country: BR (occurrence: BR)
  Receive Date: 20130610
  Receipt Date: 20130610
  Transmission Date: 20140414
  Serious: Yes (Hospitalization, Other)
  Sender: FDA-Public Use
  Company Number: BR-JNJFOC-20130513542

PATIENT
  Age: 77 Year
  Sex: 0
  Weight: 70 kg

DRUGS (10)
  1. XARELTO [Suspect]
     Indication: EMBOLISM VENOUS
     Route: 048
     Dates: start: 201212
  2. XARELTO [Suspect]
     Indication: DEEP VEIN THROMBOSIS
     Route: 048
     Dates: start: 201212
  3. CLOPIDOGREL [Interacting]
     Indication: ISCHAEMIC STROKE
     Route: 065
  4. VALSARTAN [Concomitant]
     Route: 065
  5. AMLODIPINE [Concomitant]
     Route: 065
  6. JANUMET [Concomitant]
     Route: 065
  7. GLIMEPIRIDE [Concomitant]
     Route: 065
  8. TAMSULOSIN [Concomitant]
     Route: 065
  9. BETAHISTINE HYDROCHLORIDE [Concomitant]
     Route: 065
  10. LYRICA [Concomitant]
     Route: 065

REACTIONS (4)
  - Haemorrhagic stroke [Unknown]
  - Ischaemic stroke [Unknown]
  - Hypertension [Unknown]
  - Drug interaction [Unknown]
